FAERS Safety Report 14068809 (Version 1)
Quarter: 2017Q4

REPORT INFORMATION
  Report Type: Report from Study
  Country: FR (occurrence: FR)
  Receive Date: 20171010
  Receipt Date: 20171010
  Transmission Date: 20180321
  Serious: Yes (Hospitalization)
  Sender: FDA-Public Use
  Company Number: FR-ROCHE-1982159

PATIENT
  Age: 49 Year
  Sex: Male
  Weight: 79 kg

DRUGS (9)
  1. SPECIAFOLDINE [Concomitant]
     Active Substance: FOLIC ACID
  2. OBINUTUZUMAB. [Suspect]
     Active Substance: OBINUTUZUMAB
     Indication: NON-HODGKIN^S LYMPHOMA
     Dosage: ON DAY 2, 8 AND 15
     Route: 042
     Dates: start: 20170802, end: 20170802
  3. BACTRIM [Concomitant]
     Active Substance: SULFAMETHOXAZOLE\TRIMETHOPRIM
     Dosage: 1 GM,3 IN 1 DAY
     Route: 065
     Dates: start: 20170719
  4. OBINUTUZUMAB. [Suspect]
     Active Substance: OBINUTUZUMAB
     Dosage: ON DAY 2, 8 AND 15 (CYCLE 2)
     Route: 042
     Dates: start: 20170816
  5. ZELITREX [Concomitant]
     Active Substance: VALACYCLOVIR HYDROCHLORIDE
  6. CC-122 [Suspect]
     Active Substance: INVESTIGATIONAL PRODUCT
     Indication: B-CELL LYMPHOMA
     Dosage: CYCLE 1,ON DAYS 1-5 FOLLOWED BY 2 DAYS OFF, STUDY DRUG EVERY 7 DAYS
     Route: 048
     Dates: start: 20170719, end: 20170726
  7. CC-122 [Suspect]
     Active Substance: INVESTIGATIONAL PRODUCT
     Indication: NON-HODGKIN^S LYMPHOMA
     Dosage: CYCLE 1,ON DAYS 1-5 FOLLOWED BY 2 DAYS OFF, STUDY DRUG EVERY 7 DAYS
     Route: 048
     Dates: start: 20170728, end: 20170813
  8. CC-122 [Suspect]
     Active Substance: INVESTIGATIONAL PRODUCT
     Dosage: CYCLE 1,ON DAYS 1-5 FOLLOWED BY 2 DAYS OFF, STUDY DRUG EVERY 7 DAYS
     Route: 048
     Dates: start: 20170816
  9. OBINUTUZUMAB. [Suspect]
     Active Substance: OBINUTUZUMAB
     Indication: B-CELL LYMPHOMA
     Dosage: ON DAY 2, 8 AND 15
     Route: 042
     Dates: start: 20170720, end: 20170720

REACTIONS (2)
  - Device related infection [Not Recovered/Not Resolved]
  - Tumour flare [Recovered/Resolved]

NARRATIVE: CASE EVENT DATE: 20170725
